FAERS Safety Report 8287617-1 (Version None)
Quarter: 2012Q2

REPORT INFORMATION
  Report Type: 
  Country: None (occurrence: None)
  Receive Date: 20120416
  Receipt Date: 20120410
  Transmission Date: 20120825
  Serious: Yes (Other)
  Sender: FDA-Public Use
  Company Number: PHEH2012US007690

PATIENT
  Sex: Female

DRUGS (2)
  1. VIVELLE-DOT [Suspect]
     Dosage: 0.25 MG, TWICE WEEKLY
  2. PROGESTERONE [Concomitant]

REACTIONS (1)
  - IRRITABLE BOWEL SYNDROME [None]
